FAERS Safety Report 7301990-X (Version None)
Quarter: 2011Q1

REPORT INFORMATION
  Report Type: 
  Country: None (occurrence: None)
  Receive Date: 20110218
  Receipt Date: 20110214
  Transmission Date: 20110831
  Serious: Yes (Death, Hospitalization, Other)
  Sender: FDA-Public Use
  Company Number: US-ABBOTT-11P-163-0703790-00

PATIENT
  Sex: Female

DRUGS (17)
  1. DIOVAN [Concomitant]
     Indication: CARDIAC DISORDER
     Dates: end: 20110205
  2. KEPPRA [Concomitant]
     Indication: CONVULSION
     Dates: end: 20110205
  3. VITAMIN K TAB [Concomitant]
     Indication: PRODUCT USED FOR UNKNOWN INDICATION
  4. PROVERA [Concomitant]
     Indication: UTERINE LEIOMYOMA
  5. PROVERA [Concomitant]
     Indication: ENDOMETRIOSIS
  6. ARIXTRA [Concomitant]
     Indication: PRODUCT USED FOR UNKNOWN INDICATION
     Dates: end: 20110205
  7. DILANTIN [Concomitant]
     Indication: CONVULSION
     Dates: end: 20110205
  8. LUPRON DEPOT [Suspect]
     Indication: ENDOMETRIOSIS
  9. SEROQUEL [Concomitant]
     Indication: PRODUCT USED FOR UNKNOWN INDICATION
     Dates: end: 20110205
  10. LEXAPRO [Concomitant]
     Indication: PRODUCT USED FOR UNKNOWN INDICATION
     Dates: end: 20110205
  11. UNKNOWN DIURETIC [Concomitant]
     Indication: LYMPHOEDEMA
     Dates: end: 20110205
  12. XANAX [Concomitant]
     Indication: PRODUCT USED FOR UNKNOWN INDICATION
     Dates: end: 20110205
  13. OTHER UNKNOWN MEDICATIONS [Concomitant]
     Indication: PRODUCT USED FOR UNKNOWN INDICATION
     Dates: end: 20110205
  14. LUPRON DEPOT [Suspect]
     Indication: POLYCYSTIC OVARIES
  15. PROVERA [Concomitant]
     Indication: POLYCYSTIC OVARIES
     Dates: end: 20110205
  16. LUPRON DEPOT [Suspect]
     Indication: UTERINE LEIOMYOMA
     Route: 050
     Dates: start: 20070101, end: 20110205
  17. RED BLOOD CELLS [Concomitant]
     Indication: BLOOD COUNT ABNORMAL
     Dates: start: 20100901, end: 20100901

REACTIONS (9)
  - CARDIAC ARREST [None]
  - HYPOTENSION [None]
  - ELECTROENCEPHALOGRAM ABNORMAL [None]
  - PULSE ABSENT [None]
  - SINUS DISORDER [None]
  - RESPIRATORY ARREST [None]
  - BLOOD COUNT ABNORMAL [None]
  - FALL [None]
  - TRACHEAL INJURY [None]
